FAERS Safety Report 19487985 (Version 2)
Quarter: 2021Q3

REPORT INFORMATION
  Report Type: Spontaneous
  Country: TR (occurrence: TR)
  Receive Date: 20210702
  Receipt Date: 20210721
  Transmission Date: 20211014
  Serious: Yes (Other)
  Sender: FDA-Public Use
  Company Number: TR-PFIZER INC-2021741695

PATIENT
  Age: 40 Year
  Sex: Female

DRUGS (3)
  1. REAMPLA [Suspect]
     Active Substance: PALBOCICLIB
     Indication: BREAST CANCER METASTATIC
     Dosage: 125 MG, CYCLIC (1X1 3/1 WEEK)
     Route: 048
     Dates: start: 20210111, end: 20210208
  2. FULVESTRANT. [Suspect]
     Active Substance: FULVESTRANT
     Indication: BREAST CANCER METASTATIC
     Dosage: 500 MG, CYCLIC (EVERY 28 DAYS)
     Route: 030
  3. REAMPLA [Suspect]
     Active Substance: PALBOCICLIB
     Dosage: 125 MG, CYCLIC (1X1 3/1 WEEK)
     Route: 048
     Dates: start: 20210215, end: 20210618

REACTIONS (4)
  - Neoplasm recurrence [Unknown]
  - Neutropenia [Unknown]
  - Arrhythmia [Unknown]
  - White blood cell count decreased [Unknown]

NARRATIVE: CASE EVENT DATE: 20210111
